FAERS Safety Report 8185993 (Version 5)
Quarter: 2013Q3

REPORT INFORMATION
  Report Type: Report from Study
  Country: DE (occurrence: DE)
  Receive Date: 20111018
  Receipt Date: 20130812
  Transmission Date: 20140515
  Serious: Yes (Death, Hospitalization)
  Sender: FDA-Public Use
  Company Number: DE-ROCHE-1002788

PATIENT
  Age: 65 Year
  Sex: Male
  Weight: 70 kg

DRUGS (21)
  1. BEVACIZUMAB [Suspect]
     Indication: GLIOBLASTOMA
     Dosage: LAST DOSE OF SAE 19 OCT 2011
     Route: 042
     Dates: start: 20101117
  2. IRINOTECAN [Suspect]
     Indication: GLIOBLASTOMA
     Dosage: LAST DOSE OF SAE: 19 OCT 2011
     Route: 042
     Dates: start: 20101229
  3. ZENTROPIL [Concomitant]
     Route: 065
     Dates: start: 20101013, end: 20101111
  4. FINASTERID [Concomitant]
     Route: 065
     Dates: start: 20101013
  5. SANDOCAL-D [Concomitant]
     Route: 065
     Dates: start: 20101013
  6. NEXIUM-MUPS [Concomitant]
     Route: 065
     Dates: start: 20101013, end: 20101102
  7. FORTECORTIN [Concomitant]
     Route: 065
     Dates: start: 20101013
  8. NOVALGIN [Concomitant]
     Route: 065
     Dates: start: 20101102
  9. FRAXIPARIN [Concomitant]
     Route: 065
     Dates: start: 20101013
  10. FRAXIPARIN [Concomitant]
     Route: 058
     Dates: start: 20120213
  11. KEPPRA [Concomitant]
     Route: 065
     Dates: start: 20101112
  12. KEPPRA [Concomitant]
     Route: 065
     Dates: start: 20120213
  13. ZANTIC [Concomitant]
     Dosage: 1/50 MG
     Route: 065
     Dates: start: 20101201, end: 20101201
  14. TAVEGIL [Concomitant]
     Route: 065
     Dates: start: 20101201, end: 20101201
  15. BAYOTENSIN [Concomitant]
     Route: 065
     Dates: start: 20110601
  16. ZOFRAN [Concomitant]
     Route: 065
     Dates: start: 20110616
  17. PANTAZOL [Concomitant]
     Route: 065
     Dates: start: 20120213
  18. L-THYROXIN [Concomitant]
     Indication: HYPOTHYROIDISM
     Dosage: DAILY DOSE: 0.05
     Route: 065
     Dates: start: 20120213
  19. CIPROBAY [Concomitant]
     Route: 065
     Dates: start: 20120213, end: 20120215
  20. DEXAMETHASON [Concomitant]
     Route: 065
     Dates: start: 20101013, end: 20101014
  21. DEXAMETHASON [Concomitant]
     Route: 065
     Dates: start: 20101015, end: 20101015

REACTIONS (3)
  - General physical health deterioration [Fatal]
  - Panic attack [Recovered/Resolved]
  - Grand mal convulsion [Recovered/Resolved]
